FAERS Safety Report 20353470 (Version 1)
Quarter: 2022Q1

REPORT INFORMATION
  Report Type: Spontaneous
  Country: US (occurrence: US)
  Receive Date: 20220119
  Receipt Date: 20220119
  Transmission Date: 20220423
  Serious: No
  Sender: FDA-Public Use
  Company Number: US-UNITED THERAPEUTICS-UNT-2022-000764

PATIENT
  Sex: Female
  Weight: 57.596 kg

DRUGS (8)
  1. ORENITRAM [Suspect]
     Active Substance: TREPROSTINIL
     Indication: Pulmonary arterial hypertension
     Dosage: UNK
     Route: 048
     Dates: start: 20211119
  2. ORENITRAM [Suspect]
     Active Substance: TREPROSTINIL
     Dosage: 0.5 MG, Q12H
     Route: 048
  3. ORENITRAM [Suspect]
     Active Substance: TREPROSTINIL
     Dosage: 1.5 MG, Q12H
     Route: 048
  4. ORENITRAM [Suspect]
     Active Substance: TREPROSTINIL
     Indication: Pulmonary arterial hypertension
     Dosage: UNK
     Route: 048
  5. ORENITRAM [Suspect]
     Active Substance: TREPROSTINIL
     Indication: Pulmonary arterial hypertension
     Dosage: UNK
     Route: 048
  6. ORENITRAM [Suspect]
     Active Substance: TREPROSTINIL
     Dosage: UNK
     Route: 048
  7. SILDENAFIL CITRATE [Concomitant]
     Active Substance: SILDENAFIL CITRATE
     Indication: Product used for unknown indication
     Route: 065
  8. LETAIRIS [Concomitant]
     Active Substance: AMBRISENTAN
     Indication: Product used for unknown indication
     Route: 065

REACTIONS (2)
  - Hypotension [Unknown]
  - Cough [Unknown]
